FAERS Safety Report 6922992-9 (Version None)
Quarter: 2010Q3

REPORT INFORMATION
  Report Type: 
  Country: None (occurrence: None)
  Receive Date: 20100813
  Receipt Date: 20100804
  Transmission Date: 20110219
  Serious: Yes (Life-Threatening)
  Sender: FDA-Public Use
  Company Number: DE-JNJFOC-20100801851

PATIENT
  Age: 9 Decade
  Sex: Male

DRUGS (4)
  1. ABCIXIMAB [Suspect]
     Indication: CARDIOGENIC SHOCK
     Route: 042
  2. ABCIXIMAB [Suspect]
     Dosage: 0:57 TO 12:00 HOURS (6 HOURS AND 3 MINUTES)
     Route: 042
  3. ABCIXIMAB [Suspect]
     Indication: ACUTE MYOCARDIAL INFARCTION
     Route: 042
  4. ABCIXIMAB [Suspect]
     Dosage: 0:57 TO 12:00 HOURS (6 HOURS AND 3 MINUTES)
     Route: 042

REACTIONS (7)
  - ACUTE ABDOMEN [None]
  - ATRIAL FIBRILLATION [None]
  - CARDIOGENIC SHOCK [None]
  - DIARRHOEA [None]
  - HAEMOGLOBIN DECREASED [None]
  - PNEUMONIA [None]
  - TRACHEAL HAEMORRHAGE [None]
